FAERS Safety Report 25073341 (Version 1)
Quarter: 2025Q1

REPORT INFORMATION
  Report Type: Spontaneous
  Country: IT (occurrence: IT)
  Receive Date: 20250313
  Receipt Date: 20250313
  Transmission Date: 20250409
  Serious: Yes (Other)
  Sender: RANBAXY
  Company Number: IT-SUN PHARMACEUTICAL INDUSTRIES LTD-2025RR-499097

PATIENT
  Age: 68 Year
  Sex: Male

DRUGS (2)
  1. IMATINIB [Suspect]
     Active Substance: IMATINIB
     Indication: Chronic myeloid leukaemia
     Dosage: 400 MILLIGRAM, DAILY
     Route: 065
  2. DASATINIB [Suspect]
     Active Substance: DASATINIB
     Indication: Acute promyelocytic leukaemia
     Dosage: 100 MILLIGRAM, DAILY
     Route: 065

REACTIONS (6)
  - Leukocytosis [Unknown]
  - Thrombocytopenia [Unknown]
  - Condition aggravated [Unknown]
  - Pyrexia [Unknown]
  - Pneumonia [Unknown]
  - Gastric ulcer [Unknown]
